FAERS Safety Report 7410278-8 (Version None)
Quarter: 2011Q2

REPORT INFORMATION
  Report Type: 
  Country: None (occurrence: None)
  Receive Date: 20110412
  Receipt Date: 20110318
  Transmission Date: 20111010
  Serious: Yes (Hospitalization, Other)
  Sender: FDA-Public Use
  Company Number: US-BAYER-2010-008257

PATIENT
  Age: 36 Year
  Sex: Female
  Weight: 66.667 kg

DRUGS (10)
  1. AVELOX [Concomitant]
     Dosage: 400 MG, UNK
  2. ADVAIR DISKUS 100/50 [Concomitant]
  3. PREDNISONE [Concomitant]
     Dosage: 10 MG, UNK
  4. LORAZEPAM [Concomitant]
     Dosage: 0.5 MG, UNK
  5. AZITHROMYCIN [Concomitant]
     Dosage: 250 MG, UNK
  6. LISINOPRIL [Concomitant]
     Dosage: 5 MG, UNK
  7. YAZ [Suspect]
     Indication: POLYCYSTIC OVARIES
     Dosage: UNK
     Dates: start: 20071113, end: 20090319
  8. SERTRALINE HYDROCHLORIDE [Concomitant]
     Dosage: 50 MG, UNK
  9. XOPENEX [Concomitant]
     Dosage: 45 UNK, UNK
  10. METHYLPREDNISOLONE [Concomitant]
     Dosage: 4 MG, UNK

REACTIONS (1)
  - PULMONARY EMBOLISM [None]
